FAERS Safety Report 5682221-3 (Version None)
Quarter: 2008Q1

REPORT INFORMATION
  Report Type: 
  Country: None (occurrence: None)
  Receive Date: 20080327
  Receipt Date: 20080318
  Transmission Date: 20080703
  Serious: Yes (Other)
  Sender: FDA-Public Use
  Company Number: PHFR2008GB01150

PATIENT
  Age: 28 Year
  Sex: Male

DRUGS (2)
  1. CLOZARIL [Suspect]
     Indication: SCHIZOPHRENIA
     Route: 048
     Dates: start: 20040330
  2. CHLORPROMAZINE [Suspect]

REACTIONS (6)
  - CONVULSION [None]
  - EYE ROLLING [None]
  - MUSCLE RIGIDITY [None]
  - MUSCULOSKELETAL STIFFNESS [None]
  - PLASMA CELLS DECREASED [None]
  - TREMOR [None]
